FAERS Safety Report 10074851 (Version 1)
Quarter: 2014Q2

REPORT INFORMATION
  Report Type: Spontaneous
  Country: US (occurrence: US)
  Receive Date: 20140414
  Receipt Date: 20140414
  Transmission Date: 20141212
  Serious: No
  Sender: FDA-Public Use
  Company Number: US-BIOGENIDEC-2014BI034934

PATIENT
  Sex: Female

DRUGS (2)
  1. TYSABRI [Suspect]
     Indication: MULTIPLE SCLEROSIS
     Route: 042
  2. AUBAGIO [Concomitant]

REACTIONS (5)
  - Multiple allergies [Unknown]
  - Anxiety [Unknown]
  - Immune system disorder [Unknown]
  - Pruritus [Unknown]
  - Rash [Unknown]
